FAERS Safety Report 9885838 (Version 1)
Quarter: 2013Q4

REPORT INFORMATION
  Report Type: Spontaneous
  Country: US (occurrence: None)
  Receive Date: 20131127
  Receipt Date: 20131127
  Transmission Date: 20140711
  Serious: No
  Sender: FDA-Public Use
  Company Number: 222979LEO

PATIENT
  Age: 62 Year
  Sex: Female

DRUGS (1)
  1. PICATO (0.015 %, GEL) [Suspect]
     Indication: PRODUCT USED FOR UNKNOWN INDICATION
     Route: 061
     Dates: start: 201305, end: 201305

REACTIONS (9)
  - Conjunctivitis [None]
  - Ocular hyperaemia [None]
  - Eye discharge [None]
  - Insomnia [None]
  - Photophobia [None]
  - Application site pain [None]
  - Discomfort [None]
  - Eyelid oedema [None]
  - Eye pain [None]
